FAERS Safety Report 6687974-3 (Version None)
Quarter: 2010Q2

REPORT INFORMATION
  Report Type: 
  Country: None (occurrence: None)
  Receive Date: 20100420
  Receipt Date: 20100414
  Transmission Date: 20101027
  Serious: Yes (Hospitalization)
  Sender: FDA-Public Use
  Company Number: GB-WYE-H14619610

PATIENT
  Age: 76 Year
  Sex: Female

DRUGS (7)
  1. AMIODARONE [Suspect]
     Indication: SUPRAVENTRICULAR TACHYCARDIA
     Route: 048
     Dates: start: 20090301, end: 20100225
  2. BENDROFLUAZIDE [Concomitant]
  3. ISOSORBIDE DINITRATE [Concomitant]
  4. AZITHROMYCIN [Interacting]
     Indication: CHRONIC OBSTRUCTIVE PULMONARY DISEASE
     Route: 048
     Dates: start: 20100222, end: 20100225
  5. FLUOXETINE [Concomitant]
  6. ACETYLSALICYLIC ACID [Concomitant]
  7. CARBOCISTEINE [Concomitant]
     Dosage: NOT PROVIDED
     Dates: start: 20100201

REACTIONS (6)
  - ACUTE CORONARY SYNDROME [None]
  - BLOOD MAGNESIUM DECREASED [None]
  - BRADYCARDIA [None]
  - CARDIOTOXICITY [None]
  - DRUG INTERACTION [None]
  - ELECTROCARDIOGRAM QT PROLONGED [None]
